FAERS Safety Report 6951963-1 (Version None)
Quarter: 2010Q3

REPORT INFORMATION
  Report Type: 
  Country: None (occurrence: None)
  Receive Date: 20100829
  Receipt Date: 20100414
  Transmission Date: 20110219
  Serious: No
  Sender: FDA-Public Use
  Company Number: US-ABBOTT-10P-163-0639500-00

PATIENT
  Sex: Male
  Weight: 111.23 kg

DRUGS (5)
  1. NIASPAN [Suspect]
     Indication: LOW DENSITY LIPOPROTEIN INCREASED
     Dosage: FOUR TIMES WEEKLY WITH ASPIRIN
     Dates: start: 20100301
  2. ASPIRIN [Concomitant]
     Indication: ANTICOAGULANT THERAPY
     Dosage: 81 MG 4 DAYS A WEEK
  3. ASPIRIN [Concomitant]
  4. LOTRIL [Concomitant]
     Indication: PRODUCT USED FOR UNKNOWN INDICATION
  5. BISOPROLOL FUMARATE AND HYDROCHLOROTHIAZIDE [Concomitant]
     Indication: HYPERTENSION
     Dosage: 5/6.25MG

REACTIONS (2)
  - FLUSHING [None]
  - PARAESTHESIA [None]
